FAERS Safety Report 6583580-X (Version None)
Quarter: 2010Q1

REPORT INFORMATION
  Report Type: 
  Country: None (occurrence: None)
  Receive Date: 20100212
  Receipt Date: 20100212
  Transmission Date: 20100710
  Serious: No
  Sender: FDA-Public Use
  Company Number: None

PATIENT
  Age: 60 Year
  Sex: Male
  Weight: 85.2 kg

DRUGS (1)
  1. CIPROFLOXACIN [Suspect]
     Indication: SURGERY
     Dosage: 400 MG ONCE IV
     Route: 042
     Dates: start: 20100105, end: 20100105

REACTIONS (3)
  - INFUSION SITE PRURITUS [None]
  - PRURITUS [None]
  - URTICARIA [None]
